FAERS Safety Report 11180260 (Version 1)
Quarter: 2015Q2

REPORT INFORMATION
  Report Type: Report from Study
  Country: DE (occurrence: DE)
  Receive Date: 20150611
  Receipt Date: 20150611
  Transmission Date: 20150821
  Serious: Yes (Hospitalization)
  Sender: FDA-Public Use
  Company Number: DE-ROCHE-1592562

PATIENT
  Sex: Male

DRUGS (3)
  1. BUPRENORPHIN [Concomitant]
     Active Substance: BUPRENORPHINE
     Route: 065
  2. ROACTEMRA [Suspect]
     Active Substance: TOCILIZUMAB
     Indication: RHEUMATOID ARTHRITIS
     Route: 058
     Dates: start: 20140801
  3. SYNTESTAN [Concomitant]
     Route: 065

REACTIONS (1)
  - Back pain [Unknown]
